FAERS Safety Report 9405507 (Version 2)
Quarter: 2013Q3

REPORT INFORMATION
  Report Type: Spontaneous
  Country: IT (occurrence: IT)
  Receive Date: 20130717
  Receipt Date: 20130810
  Transmission Date: 20140515
  Serious: Yes (Hospitalization)
  Sender: FDA-Public Use
  Company Number: IT-TEVA-418403ISR

PATIENT
  Age: 30 Year
  Sex: Female

DRUGS (2)
  1. IBUPROFEN [Suspect]
     Dosage: 2 DOSAGE FORMS DAILY;
     Route: 048
     Dates: start: 20130608, end: 20130608
  2. BUPROPION [Suspect]
     Dosage: 20 DOSAGE FORMS DAILY;
     Route: 048
     Dates: start: 20130608, end: 20130608

REACTIONS (2)
  - Drug abuse [Unknown]
  - Confusional state [Unknown]
